FAERS Safety Report 15129205 (Version 1)
Quarter: 2018Q3

REPORT INFORMATION
  Report Type: Spontaneous
  Country: US (occurrence: US)
  Receive Date: 20180711
  Receipt Date: 20180711
  Transmission Date: 20181010
  Serious: No
  Sender: FDA-Public Use
  Company Number: US-PFIZER INC-2017505058

PATIENT
  Age: 78 Year
  Sex: Female
  Weight: 35.37 kg

DRUGS (16)
  1. LYRICA [Suspect]
     Active Substance: PREGABALIN
     Dosage: 100 MG, 2X/DAY
     Route: 048
     Dates: start: 2016
  2. LAMOTRIGINE. [Concomitant]
     Active Substance: LAMOTRIGINE
     Dosage: 200 MG, 1X/DAY (1 DAILY PM)
  3. ONDANSETRON [Concomitant]
     Active Substance: ONDANSETRON
     Dosage: 4 MG, AS NEEDED
  4. PAROXETINE. [Concomitant]
     Active Substance: PAROXETINE
     Dosage: 40 MG, 1X/DAY (1 DAILY AM)
  5. BUSPIRONE [Concomitant]
     Active Substance: BUSPIRONE HYDROCHLORIDE
     Dosage: 45 MG, 1X/DAY (15 MG, 3 DAILY AFTER MEALS)
  6. LAMOTRIGINE. [Concomitant]
     Active Substance: LAMOTRIGINE
     Dosage: 50 MG, 1X/DAY (25MG, 2 DAILY AM)
  7. CLONAZEPAM. [Concomitant]
     Active Substance: CLONAZEPAM
     Dosage: 0.5 MG; 1/2 TABLET IN AM AND PRN
  8. LEVOTHYROXINE. [Concomitant]
     Active Substance: LEVOTHYROXINE
     Dosage: 125 UG, 1X/DAY (1 DAILY AM)
  9. LYRICA [Suspect]
     Active Substance: PREGABALIN
     Indication: NEURALGIA
     Dosage: 75 MG, 2X/DAY
     Route: 048
  10. OMEPRAZOLE. [Concomitant]
     Active Substance: OMEPRAZOLE
     Dosage: 80 MG, DAILY
  11. VITAMIN D3 [Concomitant]
     Active Substance: CHOLECALCIFEROL
     Dosage: 2 DF, DAILY
  12. TUMS [Concomitant]
     Active Substance: CALCIUM CARBONATE
     Dosage: 2 DF, DAILY
  13. BIFIDOBACTERIUM LACTIS [Concomitant]
     Active Substance: BIFIDOBACTERIUM ANIMALIS LACTIS
     Dosage: 1 DF, DAILY
  14. LYRICA [Suspect]
     Active Substance: PREGABALIN
     Indication: OCCIPITAL NEURALGIA
     Dosage: 25 MG, UNK
  15. LIOTHYRONINE [Concomitant]
     Active Substance: LIOTHYRONINE
     Dosage: 5 UG, 1X/DAY (1 DAILY AM)
  16. PRAVASTATIN. [Concomitant]
     Active Substance: PRAVASTATIN
     Dosage: 20 MG, 1X/DAY (1 AT DINNER)

REACTIONS (1)
  - Muscle spasms [Unknown]
